FAERS Safety Report 6632124-2 (Version None)
Quarter: 2010Q1

REPORT INFORMATION
  Report Type: 
  Country: None (occurrence: None)
  Receive Date: 20100312
  Receipt Date: 20100201
  Transmission Date: 20100710
  Serious: Yes (Other)
  Sender: FDA-Public Use
  Company Number: JP-SANOFI-AVENTIS-2009SA002790

PATIENT
  Age: 71 Year
  Sex: Male
  Weight: 60.5 kg

DRUGS (9)
  1. PLAVIX [Suspect]
     Route: 048
     Dates: start: 20080815
  2. ASPIRIN [Concomitant]
     Route: 048
     Dates: start: 20080621
  3. HEPARIN [Concomitant]
     Dosage: DOSE:6000 UNIT(S)
     Route: 042
     Dates: start: 20080924, end: 20080924
  4. LONGES [Concomitant]
     Route: 048
     Dates: start: 20080621
  5. LASIX [Concomitant]
     Route: 048
     Dates: start: 20080621
  6. ALDACTONE [Concomitant]
     Route: 048
     Dates: start: 20080621
  7. ARTIST [Concomitant]
     Route: 048
     Dates: start: 20080621
  8. SIGMART [Concomitant]
     Route: 048
     Dates: start: 20080621
  9. AMARYL [Concomitant]
     Route: 048
     Dates: start: 20080621

REACTIONS (1)
  - PANCREATIC CARCINOMA [None]
